FAERS Safety Report 8470143 (Version 3)
Quarter: 2012Q4

REPORT INFORMATION
  Report Type: Report from Study
  Country: NL (occurrence: BE)
  Receive Date: 20120321
  Receipt Date: 20120921
  Transmission Date: 20130627
  Serious: Yes (Death, Life-Threatening, Hospitalization)
  Sender: FDA-Public Use
  Company Number: NL-GLAXOSMITHKLINE-B0789784A

PATIENT
  Age: 65 Year
  Sex: Male

DRUGS (3)
  1. PAZOPANIB [Suspect]
     Indication: NEOPLASM MALIGNANT
     Dosage: 200MG per day
     Route: 048
     Dates: start: 20120214
  2. IFOSFAMIDE [Suspect]
     Indication: NEOPLASM MALIGNANT
     Dosage: 3GM2 Cyclic
     Route: 042
     Dates: start: 20120207, end: 20120301
  3. TELMISARTAN [Concomitant]
     Indication: HYPERTENSION
     Dosage: 40MG Per day
     Route: 048

REACTIONS (3)
  - Cardiac arrest [Not Recovered/Not Resolved]
  - Aspergillosis [Fatal]
  - Neutropenia [Not Recovered/Not Resolved]
